FAERS Safety Report 5088618-7 (Version None)
Quarter: 2006Q3

REPORT INFORMATION
  Report Type: 
  Country: None (occurrence: None)
  Receive Date: 20060825
  Receipt Date: 20060814
  Transmission Date: 20061208
  Serious: Yes (Hospitalization)
  Sender: FDA-Public Use
  Company Number: US-AVENTIS-200616845US

PATIENT
  Age: 32 Year
  Sex: Female

DRUGS (5)
  1. DOCETAXEL [Suspect]
     Indication: BREAST CANCER
     Dosage: DOSE: 4 CYCLES EVERY 21 DAYS
  2. DEXAMETHASONE [Suspect]
     Indication: BREAST CANCER
     Dosage: DOSE: UNK
  3. NEULASTA [Suspect]
     Route: 058
  4. DOXORUBICIN HCL [Suspect]
     Dosage: DOSE: 4 CYCLES EVERY 21 DAYS
  5. CYCLOPHOSPHAMIDE [Suspect]
     Dosage: DOSE: 4 CYCLES EVERY 21 DAYS

REACTIONS (1)
  - FEBRILE NEUTROPENIA [None]
